FAERS Safety Report 4435392-0 (Version None)
Quarter: 2004Q3

REPORT INFORMATION
  Report Type: 
  Country: None (occurrence: None)
  Receive Date: 20040826
  Receipt Date: 20040811
  Transmission Date: 20050211
  Serious: Yes (Hospitalization)
  Sender: FDA-Public Use
  Company Number: 2004AP04265

PATIENT
  Sex: Male

DRUGS (1)
  1. ACCOLATE [Suspect]
     Indication: ASTHMA
     Dosage: 40 MG DAILY PO
     Route: 048
     Dates: start: 20031101, end: 20040401

REACTIONS (2)
  - EOSINOPHILIC PNEUMONIA [None]
  - RENAL FAILURE [None]
